FAERS Safety Report 20608891 (Version 8)
Quarter: 2022Q3

REPORT INFORMATION
  Report Type: Report from Study
  Country: IN (occurrence: IN)
  Receive Date: 20220317
  Receipt Date: 20220915
  Transmission Date: 20221027
  Serious: Yes (Death, Hospitalization)
  Sender: FDA-Public Use
  Company Number: IN-HORIZON THERAPEUTICS-HZN-2022-001422

PATIENT

DRUGS (42)
  1. INEBILIZUMAB [Suspect]
     Active Substance: INEBILIZUMAB
     Indication: Myasthenia gravis
     Dosage: 300 MG, EVERY 2 WEEKS
     Route: 042
     Dates: start: 20211225, end: 20211225
  2. INEBILIZUMAB [Suspect]
     Active Substance: INEBILIZUMAB
     Dosage: 300 MG, EVERY 2 WEEKS (LAST DOSE PRIOR TO AE)
     Route: 042
     Dates: start: 20220119, end: 20220119
  3. EMSET [Concomitant]
     Indication: Prophylaxis of nausea and vomiting
     Dosage: 4 MG, QD
     Route: 042
     Dates: start: 20220219, end: 20220219
  4. EMSET [Concomitant]
     Dosage: 4 MG, TID
     Route: 042
     Dates: start: 20220302
  5. DISTINON [Concomitant]
     Indication: Myasthenia gravis
     Dosage: 60 MG, TID
     Dates: start: 20161206
  6. DISTINON [Concomitant]
     Dosage: 60 MG, TID
     Dates: start: 20211029
  7. DISTINON [Concomitant]
     Dosage: 60 MG, QID
     Route: 048
     Dates: start: 20220219, end: 20220227
  8. PREDNISOLONE [Concomitant]
     Active Substance: PREDNISOLONE
     Indication: Myasthenia gravis
     Dosage: 20 MG, QD
     Dates: start: 20161206
  9. PREDNISOLONE [Concomitant]
     Active Substance: PREDNISOLONE
     Dosage: 10 MG (2 TABLETS IN MORNING)
     Dates: start: 20211029
  10. PREDNISOLONE [Concomitant]
     Active Substance: PREDNISOLONE
     Dosage: 10 MG, TID
     Route: 048
     Dates: start: 20220219, end: 20220227
  11. PREDNISOLONE [Concomitant]
     Active Substance: PREDNISOLONE
     Dosage: 10 MG, BID
     Route: 048
     Dates: start: 20220223
  12. SHELCAL CT [Concomitant]
     Indication: Vitamin supplementation
     Dosage: 500 MG, QD
     Dates: start: 20211029
  13. SHELCAL CT [Concomitant]
     Indication: Mineral supplementation
     Dosage: 500 MG, QD
     Route: 048
     Dates: start: 20220219
  14. IVABID [Concomitant]
     Indication: Prophylaxis
     Dosage: 5 MG, BID
     Route: 048
     Dates: start: 20220219
  15. FOLVITE [FOLIC ACID] [Concomitant]
     Indication: Nutritional supplementation
     Dosage: 5 MG, BID
     Route: 048
     Dates: start: 20220219
  16. AZOFIT [Concomitant]
     Indication: Myasthenia gravis
     Dosage: 50 MG, QD
     Dates: start: 20211029
  17. AZOFIT [Concomitant]
     Dosage: 50 MG, BID
     Route: 048
     Dates: start: 20220219
  18. SPORLAC DS [Concomitant]
     Indication: Diarrhoea
     Dosage: UNK, 1 TABLET, OD
     Route: 048
     Dates: start: 20220219, end: 20220222
  19. IMMUNE GLOBULIN NOS [Concomitant]
     Active Substance: IMMUNE GLOBULIN NOS
     Indication: Myasthenia gravis
     Dosage: 40 G, QD
     Route: 042
     Dates: start: 20220220, end: 20220220
  20. IMMUNE GLOBULIN NOS [Concomitant]
     Active Substance: IMMUNE GLOBULIN NOS
     Dosage: 35 MG, QD
     Dates: start: 20220221, end: 20220224
  21. SUMOL [Concomitant]
     Indication: Prophylaxis
     Dosage: 650 MG, QD
     Route: 048
     Dates: start: 20220220, end: 20220224
  22. SUMOL [Concomitant]
     Dosage: 650 MG, TID
     Route: 048
     Dates: start: 20220222, end: 20220227
  23. FEBRINIL [Concomitant]
     Indication: Prophylaxis
     Dosage: 150 MG, QD, STAT
     Route: 065
     Dates: start: 20220221, end: 20220221
  24. FEBRINIL [Concomitant]
     Dosage: 2 APPLICATION OD, STAT
     Route: 065
     Dates: start: 20220226, end: 20220226
  25. FEBRINIL [Concomitant]
     Dosage: 2 APPLICATION OD, STAT
     Route: 065
     Dates: start: 20220228, end: 20220302
  26. ACETAMINOPHEN [Concomitant]
     Active Substance: ACETAMINOPHEN
     Indication: Prophylaxis
     Dosage: 150 MG, QD, STAT
     Route: 065
     Dates: start: 20220221, end: 20220221
  27. ACETAMINOPHEN [Concomitant]
     Active Substance: ACETAMINOPHEN
     Dosage: 150 MG, QD, STAT
     Route: 042
     Dates: start: 20220227, end: 20220227
  28. ZYTEE RB [BENZALKONIUM CHLORIDE;CHOLINE SALICYLATE] [Concomitant]
     Indication: Pain prophylaxis
     Dosage: UNK, 2 APPLICATIONS, THREE TIMES A DAY
     Route: 061
     Dates: start: 20220223
  29. PROCTOSEDYL BD [Concomitant]
     Indication: Prophylaxis
     Dosage: 2 APPLICATION, BD
     Route: 061
     Dates: start: 20220226, end: 20220227
  30. CEFTRIAXONE SODIUM [Concomitant]
     Active Substance: CEFTRIAXONE SODIUM
     Indication: Antibiotic prophylaxis
     Dosage: 2 G, BID
     Route: 042
     Dates: start: 20220226, end: 20220227
  31. METRONIDAZOLE [Concomitant]
     Active Substance: METRONIDAZOLE
     Indication: Diarrhoea
     Dosage: UNK, 1 APPLICATION TDS
     Route: 042
     Dates: start: 20220226, end: 20220227
  32. METRONIDAZOLE [Concomitant]
     Active Substance: METRONIDAZOLE
     Dosage: 400 MG, BID
     Route: 048
     Dates: start: 20220301
  33. ECONORM [Concomitant]
     Indication: Diarrhoea
     Dosage: 250 MG, TID
     Route: 048
     Dates: start: 20220226
  34. OPTINEURON [CALCIUM PANTOTHENATE;CYANOCOBALAMIN;NICOTINAMIDE;PYRIDOXIN [Concomitant]
     Indication: Vitamin supplementation
     Dosage: 1 APPLICATION, OD
     Route: 042
     Dates: start: 20220227, end: 20220227
  35. OPTINEURON [CALCIUM PANTOTHENATE;CYANOCOBALAMIN;NICOTINAMIDE;PYRIDOXIN [Concomitant]
     Dosage: 1 APPLICATION, OD
     Route: 042
     Dates: start: 20220219, end: 20220225
  36. LASIX [Concomitant]
     Active Substance: FUROSEMIDE
     Indication: Urinary incontinence
     Dosage: 20 MG, QD, STAT
     Route: 065
     Dates: start: 20220227, end: 20220227
  37. MEROPENEM [Concomitant]
     Active Substance: MEROPENEM
     Indication: Antibiotic prophylaxis
     Dosage: 2 G
     Route: 042
     Dates: start: 20220228
  38. SODIUM CHLORIDE [Concomitant]
     Active Substance: SODIUM CHLORIDE
     Indication: Asthenia
     Dosage: 500 ML, QD
     Route: 042
     Dates: start: 20220228, end: 20220228
  39. LOOZ PEG [Concomitant]
     Indication: Constipation
     Dosage: 2 TSF, OD
     Route: 048
     Dates: start: 20220228
  40. LINID [Concomitant]
     Indication: Antibiotic prophylaxis
     Dosage: 600 G, BID
     Route: 042
     Dates: start: 20220301
  41. TRAMADOL HYDROCHLORIDE [Concomitant]
     Active Substance: TRAMADOL HYDROCHLORIDE
     Indication: Prophylaxis
     Dosage: 100 MG, TID, PLUS SODIM CHLORIDE 100 ML
     Route: 042
     Dates: start: 20220303
  42. OXYGEN [Concomitant]
     Active Substance: OXYGEN
     Dosage: UNK, O2 SUPPORT

REACTIONS (4)
  - Septic shock [Fatal]
  - Pneumonitis [Fatal]
  - Myasthenia gravis crisis [Fatal]
  - Acute respiratory distress syndrome [Fatal]

NARRATIVE: CASE EVENT DATE: 20220219
